FAERS Safety Report 14424527 (Version 1)
Quarter: 2018Q1

REPORT INFORMATION
  Report Type: Spontaneous
  Country: US (occurrence: US)
  Receive Date: 20180123
  Receipt Date: 20180123
  Transmission Date: 20180509
  Serious: No
  Sender: FDA-Public Use
  Company Number: US-AMGEN-USASP2018008193

PATIENT
  Age: 58 Year
  Sex: Female
  Weight: 63.5 kg

DRUGS (8)
  1. HUMIRA [Suspect]
     Active Substance: ADALIMUMAB
     Indication: RHEUMATOID ARTHRITIS
     Dosage: UNK
     Route: 065
  2. XELJANZ XR [Suspect]
     Active Substance: TOFACITINIB CITRATE
     Indication: RHEUMATOID ARTHRITIS
     Dosage: 11 MG, QD
     Route: 048
     Dates: start: 201709, end: 20180116
  3. PEPPERMINT OIL [Concomitant]
     Active Substance: PEPPERMINT OIL
     Dosage: UNK
  4. FOLIC ACID. [Concomitant]
     Active Substance: FOLIC ACID
     Dosage: 1 MG, QD
  5. ENBREL [Suspect]
     Active Substance: ETANERCEPT
     Indication: RHEUMATOID ARTHRITIS
     Dosage: UNK
     Route: 065
  6. FRANKINCENSE [Concomitant]
     Dosage: UNK
  7. CLOVE OIL [Concomitant]
     Dosage: UNK
  8. SOLARASE [Suspect]
     Active Substance: DICLOFENAC
     Indication: RHEUMATOID ARTHRITIS
     Dosage: UNK
     Route: 065

REACTIONS (7)
  - Influenza like illness [Recovering/Resolving]
  - Mobility decreased [Unknown]
  - Chills [Recovered/Resolved]
  - Abdominal pain upper [Recovered/Resolved]
  - Rash [Unknown]
  - Headache [Recovered/Resolved]
  - Malaise [Unknown]

NARRATIVE: CASE EVENT DATE: 20180115
